FAERS Safety Report 14869262 (Version 1)
Quarter: 2018Q2

REPORT INFORMATION
  Report Type: Spontaneous
  Country: JP (occurrence: JP)
  Receive Date: 20180509
  Receipt Date: 20180509
  Transmission Date: 20180711
  Serious: Yes (Other)
  Sender: FDA-Public Use
  Company Number: JP-ELI_LILLY_AND_COMPANY-JP201804008195

PATIENT
  Age: 51 Year
  Sex: Male

DRUGS (1)
  1. HUMULIN R [Suspect]
     Active Substance: INSULIN HUMAN
     Indication: INSULIN TOLERANCE TEST
     Route: 042

REACTIONS (3)
  - Hypoglycaemia [Unknown]
  - Adrenocortical insufficiency acute [Recovered/Resolved]
  - Off label use [Recovered/Resolved]
